FAERS Safety Report 6771207-3 (Version None)
Quarter: 2010Q2

REPORT INFORMATION
  Report Type: 
  Country: None (occurrence: None)
  Receive Date: 20100616
  Receipt Date: 20100604
  Transmission Date: 20101027
  Serious: Yes (Hospitalization)
  Sender: FDA-Public Use
  Company Number: US-BAYER-201021241NA

PATIENT
  Age: 59 Year
  Sex: Female
  Weight: 71 kg

DRUGS (22)
  1. SORAFENIB [Suspect]
     Indication: BREAST CANCER METASTATIC
     Dosage: TOTAL DAILY DOSE: 800 MG  UNIT DOSE: 200 MG
     Route: 048
     Dates: start: 20100515, end: 20100519
  2. SORAFENIB [Suspect]
     Dosage: TOTAL DAILY DOSE: 400 MG  UNIT DOSE: 200 MG
     Route: 048
     Dates: start: 20100520, end: 20100523
  3. SORAFENIB [Suspect]
     Dosage: TOTAL DAILY DOSE: 800 MG  UNIT DOSE: 200 MG
     Route: 048
     Dates: start: 20100423, end: 20100427
  4. TAXOL [Suspect]
     Indication: BREAST CANCER METASTATIC
     Dosage: CYCLE 1
     Dates: start: 20100422
  5. ALBUTEROL [Concomitant]
  6. HYDROMORPHONE [Concomitant]
     Dosage: 3 HOURS PRN
  7. FERROUS SULFATE TAB [Concomitant]
     Dosage: TOTAL DAILY DOSE: 325 MG
  8. LOPERAMIDE [Concomitant]
     Dosage: TOTAL DAILY DOSE: 4 MG
  9. ESCITALOPRAM [Concomitant]
     Dosage: TOTAL DAILY DOSE: 10 MG
  10. IBUPROFEN [Concomitant]
     Dosage: 1 TO 1/2  TABLET QID PRN
  11. ONDANSETRON [Concomitant]
  12. ZOLPIDEM [Concomitant]
     Dosage: AT HS PRN
  13. ALPRAZOLAM [Concomitant]
     Dosage: TOTAL DAILY DOSE: 1.5 MG
  14. DYAZIDE [Concomitant]
  15. NEXIUM [Concomitant]
     Dosage: TOTAL DAILY DOSE: 40 MG
  16. NITROGLYCERIN [Concomitant]
  17. FLUNISOLIDE [Concomitant]
     Dosage: 2 SPRAYS IN BOTH NOSTRILS EVERY 12 HOURS
  18. VITAMIN D [Concomitant]
  19. MULTI-VITAMIN [Concomitant]
  20. CARDIZEM [Concomitant]
     Dosage: TOTAL DAILY DOSE: 120 MG
  21. SINGULAIR [Concomitant]
     Dosage: TOTAL DAILY DOSE: 10 MG
  22. ADVAIR DISKUS 100/50 [Concomitant]
     Dosage: TOTAL DAILY DOSE: 2 PUFF

REACTIONS (3)
  - DEHYDRATION [None]
  - HYPOKALAEMIA [None]
  - NON-CARDIAC CHEST PAIN [None]
